FAERS Safety Report 5461855-5 (Version None)
Quarter: 2007Q3

REPORT INFORMATION
  Report Type: 
  Country: None (occurrence: None)
  Receive Date: 20070918
  Receipt Date: 20070918
  Transmission Date: 20080115
  Serious: Yes (Other)
  Sender: FDA-Public Use
  Company Number: None

PATIENT
  Age: 49 Year
  Sex: Male
  Weight: 65.7716 kg

DRUGS (2)
  1. AVINZA [Suspect]
     Indication: PAIN
     Dosage: 1 CAPSULE A DAY
     Dates: start: 20060601, end: 20070101
  2. HYDROCODONE/APAP 10M/325MG [Suspect]
     Indication: PAIN
     Dosage: 8 A DAY
     Dates: start: 20070801

REACTIONS (1)
  - UNEVALUABLE EVENT [None]
